FAERS Safety Report 22027046 (Version 3)
Quarter: 2024Q1

REPORT INFORMATION
  Report Type: Spontaneous
  Country: US (occurrence: US)
  Receive Date: 20230223
  Receipt Date: 20240218
  Transmission Date: 20240409
  Serious: Yes (Other)
  Sender: FDA-Public Use
  Company Number: US-BRISTOL-MYERS SQUIBB COMPANY-2023-026565

PATIENT
  Age: 76 Year
  Sex: Male

DRUGS (1)
  1. ORENCIA [Suspect]
     Active Substance: ABATACEPT
     Indication: Product used for unknown indication
     Dosage: DOSE : 125MG (1 PEN);     FREQ : ONCE A WEEK
     Route: 058

REACTIONS (4)
  - Skin ulcer [Unknown]
  - Cataract [Unknown]
  - Eye infection [Unknown]
  - Ear infection [Unknown]

NARRATIVE: CASE EVENT DATE: 20230220
